FAERS Safety Report 5658863-8 (Version None)
Quarter: 2008Q1

REPORT INFORMATION
  Report Type: 
  Country: None (occurrence: None)
  Receive Date: 20080310
  Receipt Date: 20070726
  Transmission Date: 20080703
  Serious: No
  Sender: FDA-Public Use
  Company Number: US-BAYER-200711292BCC

PATIENT
  Age: 40 Year
  Sex: Male
  Weight: 82 kg

DRUGS (4)
  1. ALEVE [Suspect]
     Indication: BACK PAIN
     Dosage: UNIT DOSE: 220 MG
     Route: 048
     Dates: start: 20070320, end: 20070325
  2. ALEVE [Suspect]
     Dosage: TOTAL DAILY DOSE: 220 MG  UNIT DOSE: 220 MG
     Route: 048
     Dates: start: 20070326, end: 20070422
  3. NEURONTIN [Concomitant]
  4. PERCOCET [Concomitant]

REACTIONS (4)
  - BURNING SENSATION [None]
  - INSOMNIA [None]
  - PARAESTHESIA ORAL [None]
  - RESTLESSNESS [None]
